FAERS Safety Report 6993849-2 (Version None)
Quarter: 2010Q3

REPORT INFORMATION
  Report Type: 
  Country: None (occurrence: None)
  Receive Date: 20100917
  Receipt Date: 20100412
  Transmission Date: 20110219
  Serious: Yes (Hospitalization)
  Sender: FDA-Public Use
  Company Number: US-ASTRAZENECA-2009UW18013

PATIENT
  Age: 17724 Day
  Sex: Male

DRUGS (4)
  1. SEROQUEL [Suspect]
     Indication: DEPRESSION
     Route: 048
     Dates: start: 20050401
  2. LIPITOR [Concomitant]
     Indication: HYPERLIPIDAEMIA
     Dates: start: 20051127
  3. FOSINOPRIL SODIUM [Concomitant]
     Indication: DIABETES MELLITUS
     Dates: start: 20051127
  4. VALPROIC ACID [Concomitant]
     Indication: DEPRESSION
     Dates: start: 20050401, end: 20051201

REACTIONS (3)
  - DIABETES MELLITUS [None]
  - DIABETIC KETOACIDOSIS [None]
  - HYPERGLYCAEMIC HYPEROSMOLAR NONKETOTIC SYNDROME [None]
